FAERS Safety Report 7722972-X (Version None)
Quarter: 2011Q3

REPORT INFORMATION
  Report Type: 
  Country: None (occurrence: None)
  Receive Date: 20110826
  Receipt Date: 20110810
  Transmission Date: 20111222
  Serious: Yes (Hospitalization)
  Sender: FDA-Public Use
  Company Number: ZOLP20110053

PATIENT
  Age: 49 Year
  Sex: Male

DRUGS (1)
  1. ZOLPIDEM TARTRATE [Suspect]
     Indication: INSOMNIA
     Dosage: ORAL
     Route: 048

REACTIONS (16)
  - PARASOMNIA [None]
  - EYE INJURY [None]
  - DELIRIUM [None]
  - SLEEP-RELATED EATING DISORDER [None]
  - HEAD INJURY [None]
  - GUN SHOT WOUND [None]
  - BRAIN INJURY [None]
  - PNEUMONIA [None]
  - SOMNAMBULISM [None]
  - BLINDNESS [None]
  - SUBARACHNOID HAEMORRHAGE [None]
  - SUBDURAL HAEMATOMA [None]
  - CONFUSIONAL STATE [None]
  - DISORIENTATION [None]
  - ALCOHOL USE [None]
  - INTENTIONAL SELF-INJURY [None]
